FAERS Safety Report 4517952-1 (Version None)
Quarter: 2004Q4

REPORT INFORMATION
  Report Type: 
  Country: None (occurrence: None)
  Receive Date: 20041130
  Receipt Date: 20041116
  Transmission Date: 20050328
  Serious: Yes (Other)
  Sender: FDA-Public Use
  Company Number: B0357494A

PATIENT
  Sex: 0

DRUGS (3)
  1. EPIVIR [Suspect]
     Indication: HIV INFECTION
     Dosage: WEEKS
  2. ANTIRETROVIRAL MEDICATION (FORMULATION UNKNOWN) (ANTIRETROVIRAL MEDICA [Suspect]
     Indication: HIV INFECTION
     Dosage: WEEKS
  3. NEVIRAPINE (FORMULATION UNKNOWN) (NEVIRAPINE) [Suspect]
     Indication: HIV INFECTION
     Dosage: WEEKS

REACTIONS (1)
  - HEPATITIS [None]
